FAERS Safety Report 5876679-4 (Version None)
Quarter: 2008Q3

REPORT INFORMATION
  Report Type: 
  Country: None (occurrence: None)
  Receive Date: 20080910
  Receipt Date: 20080902
  Transmission Date: 20090109
  Serious: Yes (Other)
  Sender: FDA-Public Use
  Company Number: JP-ABBOTT-08P-087-0470998-00

PATIENT
  Age: 5 Year
  Sex: Male

DRUGS (6)
  1. THEOPHYLLINE [Suspect]
     Indication: RHINORRHOEA
     Route: 048
  2. THEOPHYLLINE [Suspect]
     Indication: COUGH
  3. PRANLUKAST HYDRATE [Concomitant]
     Indication: RHINORRHOEA
  4. PRANLUKAST HYDRATE [Concomitant]
     Indication: COUGH
  5. TULOBUTEROL HYDROCHLORIDE [Concomitant]
     Indication: RHINORRHOEA
  6. TULOBUTEROL HYDROCHLORIDE [Concomitant]
     Indication: COUGH

REACTIONS (1)
  - STATUS EPILEPTICUS [None]
